FAERS Safety Report 8432311-7 (Version None)
Quarter: 2012Q2

REPORT INFORMATION
  Report Type: 
  Country: None (occurrence: None)
  Receive Date: 20120613
  Receipt Date: 20120609
  Transmission Date: 20120825
  Serious: Yes (Life-Threatening)
  Sender: FDA-Public Use
  Company Number: PHHO2012IT008691

PATIENT
  Sex: Female
  Weight: 74 kg

DRUGS (3)
  1. NILOTINIB [Suspect]
     Dosage: 150 MG, UNK
  2. INC424 [Suspect]
     Indication: MYELOFIBROSIS
     Dosage: NO TREATMENT
  3. NILOTINIB [Suspect]
     Dosage: 900 MG, QD
     Dates: start: 20120514, end: 20120527

REACTIONS (4)
  - DIARRHOEA [None]
  - HEADACHE [None]
  - ASTHENIA [None]
  - DRUG ADMINISTRATION ERROR [None]
